FAERS Safety Report 9453569 (Version 3)
Quarter: 2013Q4

REPORT INFORMATION
  Report Type: Spontaneous
  Country: FR (occurrence: FR)
  Receive Date: 20130812
  Receipt Date: 20131121
  Transmission Date: 20140711
  Serious: Yes (Other)
  Sender: FDA-Public Use
  Company Number: ALCN2013FR004052

PATIENT
  Age: 62 Year
  Sex: Male

DRUGS (4)
  1. TOBRADEX [Suspect]
     Indication: CATARACT OPERATION
     Dosage: UNK
     Route: 047
     Dates: start: 201306
  2. PERNAZENE [Suspect]
     Indication: RHINITIS
     Dosage: UNK
     Route: 045
     Dates: start: 20130614, end: 20130617
  3. AMOXICILLINE BIOGARAN 250MG/5ML [Suspect]
     Indication: RHINITIS
     Dosage: UNK
     Dates: start: 20130614, end: 20130621
  4. ALPHAGAN [Suspect]
     Indication: INTRAOCULAR PRESSURE INCREASED
     Dosage: UNK
     Route: 047
     Dates: start: 2012

REACTIONS (2)
  - Choroidal infarction [Recovered/Resolved with Sequelae]
  - Visual acuity reduced [Not Recovered/Not Resolved]
